FAERS Safety Report 4740736-6 (Version None)
Quarter: 2005Q3

REPORT INFORMATION
  Report Type: 
  Country: None (occurrence: None)
  Receive Date: 20050810
  Receipt Date: 20050730
  Transmission Date: 20060218
  Serious: Yes (Hospitalization)
  Sender: FDA-Public Use
  Company Number: GB-JNJFOC-20050800430

PATIENT
  Age: 58 Year
  Sex: Female
  Weight: 67 kg

DRUGS (4)
  1. LOPERAMIDE HCL [Suspect]
     Route: 048
  2. LOPERAMIDE HCL [Suspect]
     Indication: DIARRHOEA
     Route: 048
  3. CO-PHENOTROPE [Concomitant]
     Route: 048
  4. CO-PHENOTROPE [Concomitant]
     Route: 048

REACTIONS (2)
  - APLASTIC ANAEMIA [None]
  - NEUTROPENIA [None]
